FAERS Safety Report 6656906-6 (Version None)
Quarter: 2010Q1

REPORT INFORMATION
  Report Type: 
  Country: None (occurrence: None)
  Receive Date: 20100329
  Receipt Date: 20100329
  Transmission Date: 20100710
  Serious: Yes (Other)
  Sender: FDA-Public Use
  Company Number: None

PATIENT
  Age: 54 Year
  Sex: Female
  Weight: 79.3795 kg

DRUGS (2)
  1. TOPIRAMATE [Suspect]
     Indication: MIGRAINE
     Dosage: 200MG ONCE A DAY PO
     Route: 048
     Dates: start: 20100101, end: 20100130
  2. TOPIRAMATE [Suspect]
     Indication: MIGRAINE
     Dosage: 200 MG ONCE A DAY PO
     Route: 048
     Dates: start: 20100131, end: 20100301

REACTIONS (5)
  - DRUG INEFFECTIVE [None]
  - HEADACHE [None]
  - INCORRECT DOSE ADMINISTERED [None]
  - PRODUCT FORMULATION ISSUE [None]
  - PRODUCT SUBSTITUTION ISSUE [None]
